FAERS Safety Report 8723048 (Version 3)
Quarter: 2013Q4

REPORT INFORMATION
  Report Type: Report from Study
  Country: JP (occurrence: JP)
  Receive Date: 20120814
  Receipt Date: 20131011
  Transmission Date: 20140711
  Serious: Yes (Other)
  Sender: FDA-Public Use
  Company Number: JP-VERTEX PHARMACEUTICALS INC.-AE-2012-011967

PATIENT
  Age: 46 Year
  Sex: Male

DRUGS (15)
  1. VX-950 (TELAPREVIR) [Suspect]
     Indication: CHRONIC HEPATITIS C
     Dosage: 2250 MG, QD
     Route: 048
     Dates: start: 20120425, end: 20120718
  2. RIBAVIRIN [Suspect]
     Indication: CHRONIC HEPATITIS C
     Dosage: 800 MG, QD
     Route: 048
     Dates: start: 20120425, end: 20120507
  3. RIBAVIRIN [Suspect]
     Dosage: 600 MG, QD
     Route: 048
     Dates: start: 20120508, end: 20120515
  4. RIBAVIRIN [Suspect]
     Dosage: 400 MG, QD
     Route: 048
     Dates: start: 20120516, end: 20120703
  5. RIBAVIRIN [Suspect]
     Dosage: 600 MG, QD
     Route: 048
     Dates: start: 20120704, end: 20121009
  6. PEGINTERFERON ALFA-2B [Suspect]
     Indication: CHRONIC HEPATITIS C
     Dosage: 120 ?G, QW
     Route: 058
     Dates: start: 20120425, end: 20120620
  7. PEGINTERFERON ALFA-2B [Suspect]
     Dosage: 100 ?G, QW
     Route: 058
     Dates: start: 20120704, end: 20120704
  8. PEGINTERFERON ALFA-2B [Suspect]
     Dosage: 120 ?G, QW
     Route: 058
     Dates: start: 20120711, end: 20120711
  9. PEGINTERFERON ALFA-2B [Suspect]
     Dosage: 100 ?G, QW
     Route: 058
     Dates: start: 20120718, end: 20120814
  10. PEGINTERFERON ALFA-2B [Suspect]
     Dosage: 60 ?G, QW
     Route: 058
     Dates: start: 20120815, end: 20120821
  11. PEGINTERFERON ALFA-2B [Suspect]
     Dosage: 80 ?G, QW
     Route: 058
     Dates: start: 20120822, end: 20121009
  12. PRIMPERAN [Concomitant]
     Dosage: 15 MG, QD
     Route: 048
     Dates: start: 20120428
  13. ANTEBATE [Concomitant]
     Dosage: UNK, PRN
     Route: 061
     Dates: start: 20120430, end: 20120509
  14. MYSLEE [Concomitant]
     Dosage: 10 MG, QD
     Route: 048
     Dates: start: 20120513
  15. GASMOTIN [Concomitant]
     Dosage: 10 MG, QD
     Route: 048
     Dates: start: 20120425

REACTIONS (2)
  - Neutrophil count decreased [Recovered/Resolved]
  - Neutrophil count decreased [Recovered/Resolved]
